FAERS Safety Report 5106093-0 (Version None)
Quarter: 2006Q3

REPORT INFORMATION
  Report Type: 
  Country: None (occurrence: None)
  Receive Date: 20060912
  Receipt Date: 20060905
  Transmission Date: 20061208
  Serious: Yes (Hospitalization, Other)
  Sender: FDA-Public Use
  Company Number: 0609-609

PATIENT
  Age: 80 Year
  Sex: Male
  Weight: 79.3795 kg

DRUGS (12)
  1. DUONEB [Suspect]
     Indication: COUGH
     Dosage: 1 AMP Q4-5 HR. NEBULIZER
     Dates: start: 20060816, end: 20060830
  2. DUONEB [Suspect]
     Indication: PNEUMONIA
     Dosage: 1 AMP Q4-5 HR. NEBULIZER
     Dates: start: 20060816, end: 20060830
  3. DUONEB [Suspect]
     Indication: PULMONARY CONGESTION
     Dosage: 1 AMP Q4-5 HR. NEBULIZER
     Dates: start: 20060816, end: 20060830
  4. LIBRUIM [Concomitant]
  5. ASPIRIN [Concomitant]
  6. ZOCOR [Concomitant]
  7. SPIRONOLACTONE [Concomitant]
  8. NITROGLYCERIN [Concomitant]
  9. LASIX [Concomitant]
  10. POTASSIUM CHLORIDE [Concomitant]
  11. COREG [Concomitant]
  12. COMBIVENT [Concomitant]

REACTIONS (2)
  - DRUG INEFFECTIVE [None]
  - PHARMACEUTICAL PRODUCT COMPLAINT [None]
